FAERS Safety Report 8314302-X (Version None)
Quarter: 2012Q2

REPORT INFORMATION
  Report Type: 
  Country: None (occurrence: None)
  Receive Date: 20120426
  Receipt Date: 20120417
  Transmission Date: 20120825
  Serious: Yes (Hospitalization, Other)
  Sender: FDA-Public Use
  Company Number: US-ASTRAZENECA-2012SE21779

PATIENT
  Age: 77 Year
  Sex: Male

DRUGS (1)
  1. NEXIUM [Suspect]
     Route: 048

REACTIONS (5)
  - MYOCARDIAL INFARCTION [None]
  - VISUAL ACUITY REDUCED [None]
  - NEUROPATHY PERIPHERAL [None]
  - GASTROOESOPHAGEAL REFLUX DISEASE [None]
  - INTENTIONAL DRUG MISUSE [None]
